FAERS Safety Report 7074612-3 (Version None)
Quarter: 2010Q4

REPORT INFORMATION
  Report Type: 
  Country: None (occurrence: None)
  Receive Date: 20101029
  Receipt Date: 20101025
  Transmission Date: 20110411
  Serious: Yes (Other)
  Sender: FDA-Public Use
  Company Number: A0849174A

PATIENT
  Age: 84 Year
  Sex: Female

DRUGS (7)
  1. ADVAIR DISKUS 100/50 [Suspect]
     Indication: CHRONIC OBSTRUCTIVE PULMONARY DISEASE
     Dosage: 1PUFF TWICE PER DAY
     Route: 055
     Dates: start: 20050101
  2. ATENOLOL [Concomitant]
  3. POTASSIUM CHLORIDE [Concomitant]
  4. COMBIVENT [Concomitant]
  5. ASPIRIN [Concomitant]
  6. RAMIPRIL [Concomitant]
  7. CENTRUM SILVER [Concomitant]

REACTIONS (5)
  - DYSPNOEA [None]
  - DYSPNOEA EXERTIONAL [None]
  - INAPPROPRIATE SCHEDULE OF DRUG ADMINISTRATION [None]
  - MEDICATION ERROR [None]
  - PNEUMONIA [None]
